FAERS Safety Report 5954816-0 (Version None)
Quarter: 2008Q4

REPORT INFORMATION
  Report Type: 
  Country: None (occurrence: None)
  Receive Date: 20081113
  Receipt Date: 20081104
  Transmission Date: 20090506
  Serious: Yes (Hospitalization)
  Sender: FDA-Public Use
  Company Number: 103730

PATIENT
  Age: 65 Year
  Sex: Female

DRUGS (2)
  1. SIMVASTATIN [Suspect]
     Indication: HYPERCHOLESTEROLAEMIA
     Dosage: 40 MG/QD/ORAL
     Route: 048
  2. FLUCONAZOLE [Concomitant]
     Indication: CANDIDIASIS
     Dosage: 800 MG/QD/ORAL
     Route: 048

REACTIONS (15)
  - ABASIA [None]
  - ALANINE AMINOTRANSFERASE INCREASED [None]
  - ASPARTATE AMINOTRANSFERASE INCREASED [None]
  - ASTHENIA [None]
  - BLOOD CREATINE PHOSPHOKINASE INCREASED [None]
  - BLOOD LACTATE DEHYDROGENASE INCREASED [None]
  - CANDIDIASIS [None]
  - DEVICE RELATED INFECTION [None]
  - HYPOREFLEXIA [None]
  - MUSCLE SWELLING [None]
  - MUSCULAR WEAKNESS [None]
  - MYALGIA [None]
  - MYOGLOBINURIA [None]
  - QUADRIPARESIS [None]
  - RED BLOOD CELL SEDIMENTATION RATE INCREASED [None]
